FAERS Safety Report 21491520 (Version 4)
Quarter: 2023Q1

REPORT INFORMATION
  Report Type: Spontaneous
  Country: US (occurrence: US)
  Receive Date: 20221021
  Receipt Date: 20230106
  Transmission Date: 20230417
  Serious: No
  Sender: FDA-Public Use
  Company Number: US-PFIZER INC-202201244133

PATIENT
  Age: 69 Year
  Sex: Female
  Weight: 72.562 kg

DRUGS (6)
  1. BRAFTOVI [Suspect]
     Active Substance: ENCORAFENIB
     Indication: Thyroid cancer
     Dosage: 450 MG ( 75 MG 6 PILLS)
     Dates: start: 20221013
  2. BRAFTOVI [Suspect]
     Active Substance: ENCORAFENIB
     Dosage: 6 DF
  3. MEKTOVI [Suspect]
     Active Substance: BINIMETINIB
     Indication: Thyroid cancer
     Dosage: 90 MG (15 MG 6 PILLS)
     Dates: start: 20220326
  4. MEKTOVI [Suspect]
     Active Substance: BINIMETINIB
     Dosage: 3 DF
  5. MEKTOVI [Suspect]
     Active Substance: BINIMETINIB
     Dosage: 15 MG, 2X/DAY (AM+PM)
     Route: 048
  6. ONDANSETRON [Concomitant]
     Active Substance: ONDANSETRON
     Indication: Abdominal discomfort
     Dosage: UNK

REACTIONS (6)
  - Off label use [Unknown]
  - Extra dose administered [Unknown]
  - Nausea [Unknown]
  - Constipation [Unknown]
  - Insomnia [Unknown]
  - Neoplasm recurrence [Unknown]

NARRATIVE: CASE EVENT DATE: 20221019
